FAERS Safety Report 14152144 (Version 1)
Quarter: 2017Q4

REPORT INFORMATION
  Report Type: Spontaneous
  Country: US (occurrence: None)
  Receive Date: 20171102
  Receipt Date: 20171102
  Transmission Date: 20180321
  Serious: Yes (Hospitalization)
  Sender: FDA-Public Use
  Company Number: None

PATIENT
  Age: 74 Year
  Sex: Female
  Weight: 81.8 kg

DRUGS (3)
  1. TAXOL [Suspect]
     Active Substance: PACLITAXEL
     Dates: end: 20170907
  2. CARBOPLATIN. [Suspect]
     Active Substance: CARBOPLATIN
     Dates: end: 20170907
  3. METFORMIN HYDROCHLORIDE. [Suspect]
     Active Substance: METFORMIN HYDROCHLORIDE
     Dates: end: 20170914

REACTIONS (13)
  - Erythema [None]
  - Contusion [None]
  - Blood culture positive [None]
  - Bacterial infection [None]
  - Intestinal mass [None]
  - Disseminated intravascular coagulation [None]
  - Head injury [None]
  - Blister [None]
  - Asthenia [None]
  - Rectal haemorrhage [None]
  - Faeces discoloured [None]
  - Fall [None]
  - Skin abrasion [None]

NARRATIVE: CASE EVENT DATE: 20170915
